FAERS Safety Report 4499031-5 (Version None)
Quarter: 2004Q4

REPORT INFORMATION
  Report Type: 
  Country: None (occurrence: None)
  Receive Date: 20041110
  Receipt Date: 20041110
  Transmission Date: 20050328
  Serious: Yes (Hospitalization)
  Sender: FDA-Public Use
  Company Number: None

PATIENT
  Age: 70 Year
  Sex: Male
  Weight: 117.9352 kg

DRUGS (1)
  1. PERGOLIDE 1 MG TID [Suspect]
     Indication: PARKINSON'S DISEASE
     Dosage: 1 MG PO TID
     Route: 048
     Dates: start: 20030501, end: 20040829

REACTIONS (4)
  - ACUTE PSYCHOSIS [None]
  - FEELING ABNORMAL [None]
  - HALLUCINATION, AUDITORY [None]
  - TINNITUS [None]
